FAERS Safety Report 8174162-7 (Version None)
Quarter: 2012Q1

REPORT INFORMATION
  Report Type: 
  Country: None (occurrence: None)
  Receive Date: 20120229
  Receipt Date: 20120220
  Transmission Date: 20120608
  Serious: Yes (Other)
  Sender: FDA-Public Use
  Company Number: US-MUTUAL PHARMACEUTICAL COMPANY, INC.-LVTM20120001

PATIENT
  Age: 45 Year
  Sex: Male

DRUGS (4)
  1. LEVETIRACETAM [Suspect]
     Indication: CONVULSION PROPHYLAXIS
     Route: 065
     Dates: start: 20110401, end: 20110101
  2. KEPPRA [Suspect]
     Indication: CONVULSION PROPHYLAXIS
     Route: 065
     Dates: start: 20110101, end: 20110101
  3. DEXAMETHASONE [Concomitant]
     Indication: PRODUCT USED FOR UNKNOWN INDICATION
     Route: 065
     Dates: start: 20110401
  4. TEMOZOLOMIDE [Concomitant]
     Indication: CHEMOTHERAPY
     Route: 065

REACTIONS (4)
  - RENAL FAILURE ACUTE [None]
  - URINE SODIUM INCREASED [None]
  - LEUKOCYTURIA [None]
  - TUBULOINTERSTITIAL NEPHRITIS [None]
